FAERS Safety Report 7703915-1 (Version None)
Quarter: 2011Q3

REPORT INFORMATION
  Report Type: 
  Country: None (occurrence: None)
  Receive Date: 20110823
  Receipt Date: 20110815
  Transmission Date: 20111222
  Serious: Yes (Other)
  Sender: FDA-Public Use
  Company Number: US-BAYER-2011-048367

PATIENT
  Age: 18 Year
  Sex: Female
  Weight: 63.492 kg

DRUGS (15)
  1. SINGULAIR [Concomitant]
     Dosage: UNK
     Dates: start: 20080703
  2. ADVAIR DISKUS 100/50 [Concomitant]
     Dosage: UNK
     Dates: start: 20030703
  3. ALBUTEROL SULFATE AUTOHALER [Concomitant]
     Dosage: UNK
     Dates: start: 20030703
  4. OMEPRAZOLE [Concomitant]
     Dosage: UNK
     Dates: start: 20090902
  5. FLONASE [Concomitant]
     Dosage: UNK
     Dates: start: 20030703
  6. FENTANYL [Concomitant]
     Dosage: UNK
     Dates: start: 20090810
  7. CLINDAMYCIN [Concomitant]
     Dosage: UNK
     Dates: start: 20090827
  8. CERON-DM [Concomitant]
     Dosage: UNK
     Dates: start: 20090827
  9. FEXOFENADINE [Concomitant]
     Dosage: UNK
     Dates: start: 20030703
  10. YAZ [Suspect]
     Dosage: UNK
     Dates: start: 20080512, end: 20091012
  11. HYDROCODONE BITARTRATE AND ACETAMINOPHEN [Concomitant]
     Dosage: UNK
     Dates: start: 20090818
  12. SYMBICORT [Concomitant]
     Dosage: UNK
     Dates: start: 20080525
  13. VERAMYST [Concomitant]
     Dosage: UNK
     Dates: start: 20090323
  14. NASONEX [Concomitant]
     Dosage: UNK
     Dates: start: 20030703
  15. PROAIR HFA [Concomitant]
     Dosage: UNK
     Dates: start: 20030703

REACTIONS (6)
  - CHOLELITHIASIS [None]
  - PAIN [None]
  - INJURY [None]
  - GALLBLADDER DISORDER [None]
  - CHOLECYSTITIS CHRONIC [None]
  - BILIARY COLIC [None]
